FAERS Safety Report 5682750-2 (Version None)
Quarter: 2008Q1

REPORT INFORMATION
  Report Type: 
  Country: None (occurrence: None)
  Receive Date: 20080326
  Receipt Date: 20080326
  Transmission Date: 20080703
  Serious: Yes (Life-Threatening)
  Sender: FDA-Public Use
  Company Number: None

PATIENT
  Age: 48 Year
  Sex: Female
  Weight: 90.7194 kg

DRUGS (2)
  1. TOPAMAX [Suspect]
     Indication: MIGRAINE
     Dosage: 25 MG BID PO
     Route: 048
     Dates: start: 20071220, end: 20080226
  2. TOPAMAX [Suspect]
     Indication: MIGRAINE
     Dosage: 50 MG BID PO
     Route: 048
     Dates: start: 20080227, end: 20080324

REACTIONS (11)
  - ANXIETY [None]
  - CRYING [None]
  - DEPRESSION [None]
  - DIARRHOEA [None]
  - FAECAL INCONTINENCE [None]
  - HYPOAESTHESIA [None]
  - MELAENA [None]
  - MENTAL DISORDER [None]
  - SKIN EXFOLIATION [None]
  - STRESS AT WORK [None]
  - SUICIDAL IDEATION [None]
